FAERS Safety Report 6086102-5 (Version None)
Quarter: 2009Q1

REPORT INFORMATION
  Report Type: 
  Country: None (occurrence: None)
  Receive Date: 20090217
  Receipt Date: 20090217
  Transmission Date: 20090719
  Serious: Yes (Other)
  Sender: FDA-Public Use
  Company Number: None

PATIENT
  Age: 35 Year
  Sex: Female
  Weight: 62.5964 kg

DRUGS (2)
  1. FACTIVE [Suspect]
     Indication: BRONCHITIS
     Dates: start: 20090208, end: 20090211
  2. FACTIVE [Suspect]
     Indication: DRUG INEFFECTIVE
     Dates: start: 20090208, end: 20090211

REACTIONS (3)
  - BACK PAIN [None]
  - JOINT SWELLING [None]
  - TENDON PAIN [None]
